FAERS Safety Report 12818872 (Version 2)
Quarter: 2016Q4

REPORT INFORMATION
  Report Type: Report from Study
  Country: BR (occurrence: BR)
  Receive Date: 20161006
  Receipt Date: 20161107
  Transmission Date: 20170207
  Serious: Yes (Other)
  Sender: FDA-Public Use
  Company Number: BR-BRISTOL-MYERS SQUIBB COMPANY-BMS-2016-081372

PATIENT
  Age: 43 Year
  Sex: Female

DRUGS (1)
  1. ABATACEPT [Suspect]
     Active Substance: ABATACEPT
     Indication: RHEUMATOID ARTHRITIS
     Dosage: 250 MG, QMO
     Route: 042

REACTIONS (4)
  - Polyuria [Recovering/Resolving]
  - Arthralgia [Recovering/Resolving]
  - Herpes zoster [Recovered/Resolved]
  - Immunodeficiency [Recovering/Resolving]

NARRATIVE: CASE EVENT DATE: 20160810
